FAERS Safety Report 17342148 (Version 1)
Quarter: 2020Q1

REPORT INFORMATION
  Report Type: Spontaneous
  Country: US (occurrence: US)
  Receive Date: 20200129
  Receipt Date: 20200129
  Transmission Date: 20200409
  Serious: No
  Sender: FDA-Public Use
  Company Number: US-ALLERGAN-1905013US

PATIENT
  Sex: Female

DRUGS (2)
  1. BOTOX [Suspect]
     Active Substance: ONABOTULINUMTOXINA
     Indication: SKIN WRINKLING
     Dosage: UNK, SINGLE
     Route: 030
     Dates: start: 20190125, end: 20190125
  2. BOTOX [Suspect]
     Active Substance: ONABOTULINUMTOXINA
     Indication: SKIN WRINKLING

REACTIONS (8)
  - Injection site discomfort [Unknown]
  - Injection site swelling [Unknown]
  - Facial asymmetry [Unknown]
  - Injection site haemorrhage [Unknown]
  - Injection site mass [Unknown]
  - Eye contusion [Unknown]
  - Facial paresis [Not Recovered/Not Resolved]
  - Injection site bruising [Unknown]
